FAERS Safety Report 24421594 (Version 1)
Quarter: 2024Q4

REPORT INFORMATION
  Report Type: Spontaneous
  Country: SG (occurrence: SG)
  Receive Date: 20241010
  Receipt Date: 20241010
  Transmission Date: 20250114
  Serious: Yes (Hospitalization)
  Sender: OCTAPHARMA
  Company Number: SG-OCTA-LEX28624

PATIENT
  Age: 49 Year
  Sex: Female

DRUGS (2)
  1. OCTAPLEX [Suspect]
     Active Substance: COAGULATION FACTOR IX HUMAN\COAGULATION FACTOR VII HUMAN\COAGULATION FACTOR X HUMAN\PROTEIN C\PROTEI
     Indication: Product used for unknown indication
     Route: 042
  2. CEFTRIAXONE [Concomitant]
     Active Substance: CEFTRIAXONE
     Indication: Product used for unknown indication

REACTIONS (4)
  - Angioedema [Unknown]
  - Hypotension [Unknown]
  - Pruritus [Unknown]
  - Syncope [Unknown]

NARRATIVE: CASE EVENT DATE: 20240919
